FAERS Safety Report 5437089-7 (Version None)
Quarter: 2007Q3

REPORT INFORMATION
  Report Type: 
  Country: None (occurrence: None)
  Receive Date: 20070831
  Receipt Date: 20070821
  Transmission Date: 20080115
  Serious: No
  Sender: FDA-Public Use
  Company Number: A0672937A

PATIENT

DRUGS (1)
  1. ALLI [Suspect]

REACTIONS (3)
  - DIZZINESS [None]
  - FAECES DISCOLOURED [None]
  - WEIGHT INCREASED [None]
